FAERS Safety Report 5476689-5 (Version None)
Quarter: 2007Q4

REPORT INFORMATION
  Report Type: 
  Country: None (occurrence: None)
  Receive Date: 20071002
  Receipt Date: 20071002
  Transmission Date: 20080405
  Serious: Yes (Other)
  Sender: FDA-Public Use
  Company Number: None

PATIENT
  Sex: Female
  Weight: 53.8 kg

DRUGS (1)
  1. CARIMUNE [Suspect]
     Dates: start: 20070919, end: 20070919

REACTIONS (2)
  - CHEST PAIN [None]
  - INFUSION RELATED REACTION [None]
